FAERS Safety Report 10670624 (Version 2)
Quarter: 2015Q2

REPORT INFORMATION
  Report Type: Spontaneous
  Country: US (occurrence: None)
  Receive Date: 20141219
  Receipt Date: 20150415
  Transmission Date: 20150821
  Serious: Yes (Death)
  Sender: FDA-Public Use
  Company Number: 1713747-2014-999221

PATIENT
  Age: 71 Year
  Sex: Male

DRUGS (3)
  1. LIBERTY CYCLER SET [Concomitant]
  2. LIBERTY CYCLER [Concomitant]
     Active Substance: DEVICE
  3. DELFLEX [Suspect]
     Active Substance: CALCIUM CHLORIDE\DEXTROSE MONOHYDRATE\MAGNESIUM CHLORIDE\SODIUM CHLORIDE\SODIUM LACTATE
     Indication: NEPHROPATHY
     Dosage: PERITONEAL DIALYSIS
     Dates: start: 20141124

REACTIONS (2)
  - Cardio-respiratory arrest [None]
  - Septic shock [None]

NARRATIVE: CASE EVENT DATE: 20141125
